FAERS Safety Report 9282302 (Version 2)
Quarter: 2013Q2

REPORT INFORMATION
  Report Type: Report from Study
  Country: CH (occurrence: CH)
  Receive Date: 20130510
  Receipt Date: 20130521
  Transmission Date: 20140414
  Serious: Yes (Death, Life-Threatening, Hospitalization, Other)
  Sender: FDA-Public Use
  Company Number: CH-GENZYME-CLOF-1002617

PATIENT
  Age: 63 Year
  Sex: Male
  Weight: 87 kg

DRUGS (4)
  1. EVOLTRA [Suspect]
     Indication: ACUTE MYELOID LEUKAEMIA
     Dosage: 19 MG, UNK
     Route: 042
     Dates: start: 20130416
  2. IDARUBICIN [Suspect]
     Indication: ACUTE MYELOID LEUKAEMIA
     Dosage: 23 MG, UNK
     Route: 042
     Dates: start: 20130416
  3. CYTARABINE [Suspect]
     Indication: ACUTE MYELOID LEUKAEMIA
     Dosage: 385 MG, UNK
     Route: 042
     Dates: start: 20130416
  4. FUNGIZONE [Concomitant]
     Indication: FUNGAL INFECTION
     Dosage: 80 MG, UNK
     Route: 042
     Dates: start: 20130503

REACTIONS (8)
  - Atrial fibrillation [Unknown]
  - Multi-organ failure [Fatal]
  - Acute respiratory distress syndrome [Unknown]
  - Cardiac failure [Unknown]
  - Pneumonia [Unknown]
  - Pseudomonal sepsis [Unknown]
  - Enterococcal sepsis [Unknown]
  - Septic shock [Fatal]
